FAERS Safety Report 21172086 (Version 1)
Quarter: 2022Q3

REPORT INFORMATION
  Report Type: Spontaneous
  Country: AR (occurrence: AR)
  Receive Date: 20220804
  Receipt Date: 20220804
  Transmission Date: 20221026
  Serious: Yes (Other)
  Sender: FDA-Public Use
  Company Number: AR-PFIZER INC-PV202200034484

PATIENT
  Age: 78 Year
  Sex: Female

DRUGS (2)
  1. IBRANCE [Suspect]
     Active Substance: PALBOCICLIB
     Indication: Breast cancer metastatic
     Dosage: 100 MG, CYCLIC (DAILY, SCHEME 3X1)
     Dates: start: 20200323
  2. LETROZOLE [Concomitant]
     Active Substance: LETROZOLE

REACTIONS (2)
  - Fall [Unknown]
  - Fracture [Unknown]

NARRATIVE: CASE EVENT DATE: 20220701
